FAERS Safety Report 25137469 (Version 3)
Quarter: 2025Q2

REPORT INFORMATION
  Report Type: Spontaneous
  Country: US (occurrence: US)
  Receive Date: 20250329
  Receipt Date: 20250510
  Transmission Date: 20250717
  Serious: No
  Sender: SANOFI AVENTIS
  Company Number: US-SA-2025SA090858

PATIENT
  Age: 43 Year
  Sex: Male

DRUGS (2)
  1. DUPIXENT [Suspect]
     Active Substance: DUPILUMAB
     Indication: Eosinophilic oesophagitis
     Dosage: 300 MG, QW
     Route: 058
     Dates: start: 20250210
  2. UNSPECIFIED INGREDIENT [Concomitant]
     Active Substance: UNSPECIFIED INGREDIENT
     Dates: start: 20250330

REACTIONS (5)
  - Injection site irritation [Recovered/Resolved]
  - Injection site warmth [Recovered/Resolved]
  - Injection site inflammation [Unknown]
  - Injection site erythema [Recovered/Resolved]
  - Injection site swelling [Recovered/Resolved]

NARRATIVE: CASE EVENT DATE: 20250101
